FAERS Safety Report 5979513-7 (Version None)
Quarter: 2008Q4

REPORT INFORMATION
  Report Type: 
  Country: None (occurrence: None)
  Receive Date: 20081204
  Receipt Date: 20081201
  Transmission Date: 20090506
  Serious: Yes (Other)
  Sender: FDA-Public Use
  Company Number: IT-ROXANE LABORATORIES, INC.-2008-RO-00306RO

PATIENT
  Age: 72 Year
  Sex: Female

DRUGS (3)
  1. METHOTREXATE [Suspect]
     Indication: BREAST CANCER METASTATIC
     Dosage: 300MG
  2. METHOTREXATE [Suspect]
     Indication: METASTASES TO CENTRAL NERVOUS SYSTEM
  3. CORTICOSTEROIDS [Concomitant]
     Indication: TOXIC ENCEPHALOPATHY

REACTIONS (1)
  - LEUKOENCEPHALOPATHY [None]
